FAERS Safety Report 7389828-6 (Version None)
Quarter: 2011Q2

REPORT INFORMATION
  Report Type: 
  Country: None (occurrence: None)
  Receive Date: 20110401
  Receipt Date: 20110328
  Transmission Date: 20111010
  Serious: Yes (Other)
  Sender: FDA-Public Use
  Company Number: US-PFIZER INC-US-WYE-H16358510

PATIENT
  Weight: 104.3 kg

DRUGS (8)
  1. ACETYLSALICYLIC ACID [Concomitant]
     Route: 065
  2. NEXIUM [Concomitant]
     Route: 065
  3. ZOLOFT [Suspect]
     Indication: DEPRESSION
     Dosage: UNKNOWN
     Route: 065
     Dates: start: 20020101, end: 20100701
  4. EFFEXOR XR [Suspect]
     Indication: DEPRESSION
     Dosage: 75 MG, 1X/DAY
     Route: 048
     Dates: start: 20020101, end: 20100601
  5. PLAVIX [Concomitant]
     Route: 065
  6. DIOVAN HCT [Concomitant]
     Route: 065
  7. CRESTOR [Concomitant]
     Route: 065
  8. AMLODIPINE [Concomitant]
     Route: 065

REACTIONS (4)
  - RENAL CYST [None]
  - MESENTERITIS [None]
  - WEIGHT INCREASED [None]
  - ABDOMINAL PAIN UPPER [None]
